FAERS Safety Report 9168198 (Version 1)
Quarter: 2013Q1

REPORT INFORMATION
  Report Type: Spontaneous
  Country: US (occurrence: None)
  Receive Date: 20130307
  Receipt Date: 20130307
  Transmission Date: 20140127
  Serious: Yes (Hospitalization)
  Sender: FDA-Public Use
  Company Number: SYM-2013-00914

PATIENT
  Age: 89 Year
  Sex: Female

DRUGS (1)
  1. ENAPREN COMPRESSE [Suspect]
     Indication: HYPERTENSION
     Dates: start: 20120301, end: 20120906

REACTIONS (1)
  - Renal failure acute [None]
